FAERS Safety Report 16164898 (Version 1)
Quarter: 2019Q2

REPORT INFORMATION
  Report Type: Spontaneous
  Country: US (occurrence: US)
  Receive Date: 20190405
  Receipt Date: 20190405
  Transmission Date: 20190711
  Serious: No
  Sender: FDA-Public Use
  Company Number: US-LNK INTERNATIONAL, INC.-2065387

PATIENT
  Age: 75 Year
  Sex: Female

DRUGS (2)
  1. CALCIUM CARBONATE 400MG BUBBLE GUM FLAVOR CHEWABLE TABLETS [Suspect]
     Active Substance: CALCIUM CARBONATE
     Indication: DYSPEPSIA
  2. TRIAMTERENE. [Concomitant]
     Active Substance: TRIAMTERENE

REACTIONS (1)
  - Dyspepsia [Unknown]
